FAERS Safety Report 10230008 (Version 3)
Quarter: 2015Q2

REPORT INFORMATION
  Report Type: Spontaneous
  Country: US (occurrence: US)
  Receive Date: 20140611
  Receipt Date: 20150524
  Transmission Date: 20150821
  Serious: No
  Sender: FDA-Public Use
  Company Number: US-JNJFOC-20140518670

PATIENT
  Sex: Male
  Weight: 72.58 kg

DRUGS (2)
  1. DURAGESIC [Suspect]
     Active Substance: FENTANYL
     Indication: RHEUMATOID ARTHRITIS
     Dosage: 2002 OR 2003
     Route: 062
  2. DURAGESIC [Suspect]
     Active Substance: FENTANYL
     Indication: OSTEOARTHRITIS
     Dosage: 2002 OR 2003
     Route: 062

REACTIONS (4)
  - Product quality issue [Recovered/Resolved]
  - Product quality issue [Unknown]
  - Drug administration error [Not Recovered/Not Resolved]
  - Drug dose omission [Recovered/Resolved]
